FAERS Safety Report 6519479-4 (Version None)
Quarter: 2009Q4

REPORT INFORMATION
  Report Type: 
  Country: None (occurrence: None)
  Receive Date: 20091228
  Receipt Date: 20091216
  Transmission Date: 20100525
  Serious: Yes (Other)
  Sender: FDA-Public Use
  Company Number: US-MYLANLABS-2009S1020222

PATIENT
  Age: 18 Year
  Sex: Female

DRUGS (2)
  1. AMNESTEEM [Suspect]
     Dates: start: 20090401, end: 20090630
  2. AMNESTEEM [Suspect]
     Dates: end: 20090601

REACTIONS (1)
  - DRUG EXPOSURE BEFORE PREGNANCY [None]
